FAERS Safety Report 19614464 (Version 1)
Quarter: 2021Q3

REPORT INFORMATION
  Report Type: Spontaneous
  Country: JP (occurrence: JP)
  Receive Date: 20210727
  Receipt Date: 20210727
  Transmission Date: 20211014
  Serious: Yes (Death, Other)
  Sender: FDA-Public Use
  Company Number: JP-ASTELLAS-2021US027448

PATIENT
  Age: 8 Decade
  Sex: Male

DRUGS (3)
  1. AMBISOME [Suspect]
     Active Substance: AMPHOTERICIN B
     Indication: FUNGAL ENDOCARDITIS
     Route: 041
  2. AMBISOME [Suspect]
     Active Substance: AMPHOTERICIN B
     Route: 041
  3. FUNGUARD [Concomitant]
     Active Substance: MICAFUNGIN SODIUM
     Indication: PRODUCT USED FOR UNKNOWN INDICATION
     Dosage: UNK UNK, UNKNOWN FREQ.
     Route: 065

REACTIONS (3)
  - Blood potassium decreased [Recovered/Resolved]
  - Cardiac failure [Fatal]
  - Therapeutic response decreased [Unknown]
